FAERS Safety Report 24649584 (Version 1)
Quarter: 2024Q4

REPORT INFORMATION
  Report Type: Spontaneous
  Country: JP (occurrence: JP)
  Receive Date: 20241121
  Receipt Date: 20241121
  Transmission Date: 20250114
  Serious: Yes (Other)
  Sender: NOVARTIS
  Company Number: JP-002147023-NVSJ2024JP013553

PATIENT
  Age: 60 Year
  Sex: Male

DRUGS (1)
  1. BEOVU [Suspect]
     Active Substance: BROLUCIZUMAB-DBLL
     Indication: Age-related macular degeneration
     Dosage: 6 MG
     Route: 031

REACTIONS (9)
  - Retinal haemorrhage [Unknown]
  - Detachment of retinal pigment epithelium [Unknown]
  - Concomitant disease aggravated [Unknown]
  - Visual acuity reduced transiently [Recovered/Resolved]
  - Haemolysis [Unknown]
  - Vitreous opacities [Unknown]
  - Eye inflammation [Unknown]
  - Anterior chamber cell [Unknown]
  - Anterior chamber flare [Unknown]
